FAERS Safety Report 9587398 (Version 2)
Quarter: 2013Q4

REPORT INFORMATION
  Report Type: Report from Study
  Country: JP (occurrence: JP)
  Receive Date: 20131003
  Receipt Date: 20131003
  Transmission Date: 20140711
  Serious: Yes (Death)
  Sender: FDA-Public Use
  Company Number: JP-BRISTOL-MYERS SQUIBB COMPANY-17135542

PATIENT
  Age: 84 Year
  Sex: Male
  Weight: 57 kg

DRUGS (4)
  1. SPRYCEL [Suspect]
     Indication: CHRONIC MYELOID LEUKAEMIA
     Route: 048
     Dates: start: 20121109, end: 20121110
  2. CYLOCIDE [Suspect]
     Indication: BLAST CRISIS IN MYELOGENOUS LEUKAEMIA
     Dosage: INJ
     Route: 058
     Dates: start: 20121110, end: 20121110
  3. PREDOPA [Concomitant]
     Dosage: INJ
     Route: 042
     Dates: start: 20121111, end: 20121111
  4. SOLU-MEDROL [Concomitant]
     Dosage: INJ
     Route: 042
     Dates: start: 20121111, end: 20121111

REACTIONS (2)
  - Cardiac failure [Fatal]
  - Malignant neoplasm progression [Fatal]
